FAERS Safety Report 8913917 (Version 1)
Quarter: 2012Q4

REPORT INFORMATION
  Report Type: 
  Country: JP (occurrence: JP)
  Receive Date: 20121119
  Receipt Date: 20121119
  Transmission Date: 20130627
  Serious: Yes (Other)
  Sender: FDA-Public Use
  Company Number: JP-ELI_LILLY_AND_COMPANY-JP201211001425

PATIENT
  Sex: Male

DRUGS (2)
  1. HUMALOG LISPRO [Suspect]
     Dosage: 6 IU, UNK
     Route: 058
  2. LANTUS [Concomitant]
     Dosage: 16 IU, each evening

REACTIONS (4)
  - Eye operation [Recovered/Resolved]
  - Cataract operation [Recovered/Resolved]
  - Hyperhidrosis [Unknown]
  - Foaming at mouth [Unknown]
